FAERS Safety Report 17279410 (Version 1)
Quarter: 2020Q1

REPORT INFORMATION
  Report Type: Report from Study
  Country: IT (occurrence: IT)
  Receive Date: 20200116
  Receipt Date: 20200116
  Transmission Date: 20200409
  Serious: Yes (Hospitalization)
  Sender: FDA-Public Use
  Company Number: IT-MYLANLABS-2020M1003947

PATIENT
  Age: 57 Year
  Sex: Male

DRUGS (1)
  1. UGUROL [Suspect]
     Active Substance: TRANEXAMIC ACID
     Indication: HAEMORRHAGE
     Dosage: 1500 MILLIGRAM, QD
     Route: 030
     Dates: end: 20190814

REACTIONS (6)
  - Urinary bladder haemorrhage [Recovering/Resolving]
  - Haematuria [Recovering/Resolving]
  - Dysuria [Recovering/Resolving]
  - Thrombocytopenia [Recovering/Resolving]
  - Drug ineffective [Recovering/Resolving]
  - Abdominal pain lower [Recovering/Resolving]

NARRATIVE: CASE EVENT DATE: 20190811
